FAERS Safety Report 11449031 (Version 1)
Quarter: 2015Q3

REPORT INFORMATION
  Report Type: Spontaneous
  Country: JP (occurrence: JP)
  Receive Date: 20150902
  Receipt Date: 20150902
  Transmission Date: 20151125
  Serious: Yes (Death, Hospitalization, Other)
  Sender: FDA-Public Use
  Company Number: JP-BAXTER-2015BAX040521

PATIENT
  Age: 67 Year
  Sex: Female

DRUGS (6)
  1. BLEOMYCIN [Suspect]
     Active Substance: BLEOMYCIN SULFATE
     Indication: HODGKIN^S DISEASE
     Dosage: CYCLIC, ABVD THERAPY
     Route: 041
     Dates: start: 20150309, end: 20150805
  2. ADRIACIN [Suspect]
     Active Substance: DOXORUBICIN HYDROCHLORIDE
     Indication: HODGKIN^S DISEASE
     Dosage: CYCLIC, ABVD THERAPY
     Route: 041
     Dates: start: 20150309, end: 20150805
  3. EXAL [Suspect]
     Active Substance: VINBLASTINE SULFATE
     Indication: HODGKIN^S DISEASE
     Dosage: CYCLIC, ABVD THERAPY
     Route: 041
     Dates: end: 20150805
  4. ENDOXAN 1G [Suspect]
     Active Substance: CYCLOPHOSPHAMIDE
     Indication: INTERSTITIAL LUNG DISEASE
     Route: 042
     Dates: start: 20150714
  5. ENDOXAN 1G [Suspect]
     Active Substance: CYCLOPHOSPHAMIDE
     Indication: OFF LABEL USE
  6. DACARBAZINE. [Suspect]
     Active Substance: DACARBAZINE
     Indication: HODGKIN^S DISEASE
     Dosage: CYCLIC, ABVD THERAPY
     Route: 041
     Dates: end: 20150805

REACTIONS (8)
  - Pneumothorax [Unknown]
  - Interstitial lung disease [Fatal]
  - Condition aggravated [Unknown]
  - Pneumomediastinum [Unknown]
  - Drug resistance [Unknown]
  - Respiratory failure [Fatal]
  - Subcutaneous emphysema [Unknown]
  - Condition aggravated [Unknown]

NARRATIVE: CASE EVENT DATE: 20150618
